FAERS Safety Report 20633764 (Version 1)
Quarter: 2022Q1

REPORT INFORMATION
  Report Type: Spontaneous
  Country: US (occurrence: US)
  Receive Date: 20220324
  Receipt Date: 20220324
  Transmission Date: 20220424
  Serious: No
  Sender: FDA-Public Use
  Company Number: US-PFIZER INC-2021563018

PATIENT

DRUGS (2)
  1. TAZICEF [Suspect]
     Active Substance: CEFTAZIDIME
     Dosage: UNK
  2. TAZICEF [Suspect]
     Active Substance: CEFTAZIDIME
     Dosage: 2 G

REACTIONS (1)
  - Device issue [Unknown]
